FAERS Safety Report 13545653 (Version 1)
Quarter: 2017Q2

REPORT INFORMATION
  Report Type: Spontaneous
  Country: US (occurrence: US)
  Receive Date: 20170515
  Receipt Date: 20170515
  Transmission Date: 20170830
  Serious: No
  Sender: FDA-Public Use
  Company Number: US-PFIZER INC-2017208767

PATIENT
  Age: 47 Year
  Sex: Male

DRUGS (1)
  1. STREPTOMYCIN SULFATE. [Suspect]
     Active Substance: STREPTOMYCIN SULFATE
     Dosage: UNK

REACTIONS (2)
  - Oral pain [Unknown]
  - Drug hypersensitivity [Unknown]
